FAERS Safety Report 9088728 (Version 2)
Quarter: 2013Q1

REPORT INFORMATION
  Report Type: Spontaneous
  Country: US (occurrence: US)
  Receive Date: 20130201
  Receipt Date: 20130212
  Transmission Date: 20140127
  Serious: Yes (Death)
  Sender: FDA-Public Use
  Company Number: PHEH2013US002734

PATIENT
  Age: 62 Year
  Sex: Female
  Weight: 150 kg

DRUGS (7)
  1. DIOVAN [Suspect]
     Indication: HYPERTENSION
     Dosage: 320 MG, DAILY (2DF)
     Route: 048
     Dates: start: 20110216
  2. METOPROLOL [Concomitant]
     Indication: HYPERTENSION
     Dosage: 60 MG, BID
     Route: 047
     Dates: start: 2005
  3. DETROL LA [Concomitant]
     Indication: HYPERTONIC BLADDER
     Dosage: 4 MG, QD
     Route: 048
     Dates: start: 2008
  4. ZOCOL [Concomitant]
     Indication: BLOOD CHOLESTEROL INCREASED
     Dosage: 20 MG, QD
     Route: 048
     Dates: start: 2008
  5. CELEXA [Concomitant]
     Indication: DEPRESSION
     Dosage: 40 MG, QD
     Route: 048
     Dates: start: 2009
  6. DICLOFENAC [Concomitant]
     Dosage: 75 MG, BID
     Route: 048
     Dates: start: 2011
  7. ABILIFY [Concomitant]
     Indication: SCHIZOPHRENIA, PARANOID TYPE
     Dosage: 30 MG, UNK

REACTIONS (2)
  - Death [Fatal]
  - Incorrect dose administered [Unknown]
